FAERS Safety Report 13124852 (Version 1)
Quarter: 2017Q1

REPORT INFORMATION
  Report Type: Spontaneous
  Country: None (occurrence: US)
  Receive Date: 20170114
  Receipt Date: 20170114
  Transmission Date: 20170428
  Serious: Yes (Hospitalization)
  Sender: FDA-Public Use
  Company Number: None

PATIENT
  Age: 67 Year
  Sex: Female
  Weight: 72.9 kg

DRUGS (1)
  1. MEMANTINE HYDROCHLORIDE. [Suspect]
     Active Substance: MEMANTINE HYDROCHLORIDE
     Dates: end: 20161208

REACTIONS (6)
  - Inappropriate antidiuretic hormone secretion [None]
  - Dizziness [None]
  - Fatigue [None]
  - Blood pressure increased [None]
  - Hyponatraemia [None]
  - Hypertension [None]

NARRATIVE: CASE EVENT DATE: 20161207
